FAERS Safety Report 5974150-2 (Version None)
Quarter: 2008Q4

REPORT INFORMATION
  Report Type: 
  Country: None (occurrence: None)
  Receive Date: 20081201
  Receipt Date: 20081126
  Transmission Date: 20090506
  Serious: Yes (Death)
  Sender: FDA-Public Use
  Company Number: US-PFIZER INC-2005108409

PATIENT
  Sex: Female
  Weight: 87.5 kg

DRUGS (2)
  1. SUTENT [Suspect]
     Indication: GASTROINTESTINAL STROMAL TUMOUR
     Route: 048
     Dates: start: 20050701, end: 20050728
  2. LIPITOR [Concomitant]
     Indication: HYPERTENSION
     Route: 065
     Dates: start: 20050503

REACTIONS (1)
  - DEATH [None]
